FAERS Safety Report 8138933-5 (Version None)
Quarter: 2012Q1

REPORT INFORMATION
  Report Type: 
  Country: None (occurrence: None)
  Receive Date: 20120215
  Receipt Date: 20120206
  Transmission Date: 20120608
  Serious: Yes (Other)
  Sender: FDA-Public Use
  Company Number: CA-UCBSA-049629

PATIENT
  Age: 55 Year
  Sex: Male

DRUGS (4)
  1. KEPPRA [Concomitant]
     Indication: GRAND MAL CONVULSION
     Dosage: DOSE PER INTAKE: 1500 MG 1 AM ,2000 MG 1 PM
     Route: 048
     Dates: start: 20050101
  2. VIMPAT [Suspect]
     Indication: EPILEPSY
     Dosage: NO OF INTAKES: ONCE AM AND ONCE PM
     Route: 048
     Dates: start: 20110601, end: 20110701
  3. PRIMIDONE [Concomitant]
     Indication: ESSENTIAL TREMOR
     Dosage: NO OF INTAKES: 3
  4. LAMICTAL [Concomitant]
     Indication: GRAND MAL CONVULSION
     Dosage: DOSE PER INTAKE: 300 MG AM,400 MG PM
     Route: 048
     Dates: start: 20010101

REACTIONS (1)
  - CONVULSION [None]
